FAERS Safety Report 7838894-X (Version None)
Quarter: 2011Q4

REPORT INFORMATION
  Report Type: 
  Country: None (occurrence: None)
  Receive Date: 20111024
  Receipt Date: 20111013
  Transmission Date: 20120403
  Serious: Yes (Other)
  Sender: FDA-Public Use
  Company Number: US-US-EMD SERONO, INC.-7089638

PATIENT
  Sex: Female

DRUGS (4)
  1. REBIF [Suspect]
     Indication: PRODUCT USED FOR UNKNOWN INDICATION
  2. REBIF [Suspect]
     Route: 058
     Dates: start: 20110815, end: 20111013
  3. CITALOPRAM [Concomitant]
     Indication: DEPRESSION
  4. ATIVAN [Concomitant]
     Indication: DEPRESSION

REACTIONS (5)
  - INFLUENZA LIKE ILLNESS [None]
  - HOMICIDAL IDEATION [None]
  - DEPRESSION [None]
  - HEADACHE [None]
  - MALAISE [None]
